FAERS Safety Report 8997313 (Version 1)
Quarter: 2013Q1

REPORT INFORMATION
  Report Type: Spontaneous
  Country: US (occurrence: US)
  Receive Date: 20130104
  Receipt Date: 20130104
  Transmission Date: 20140127
  Serious: Yes (Other)
  Sender: FDA-Public Use
  Company Number: US-PFIZER INC-2013001903

PATIENT
  Age: 56 Year
  Sex: Male
  Weight: 181 kg

DRUGS (1)
  1. ADVIL [Suspect]
     Indication: ANALGESIC THERAPY
     Dosage: UNK (TAKING AT LEAST TWENTY FOUR TABLETS OF 200 MG EACH, A DAY)
     Route: 048

REACTIONS (3)
  - Wound [Not Recovered/Not Resolved]
  - Impaired healing [Unknown]
  - Drug ineffective [Unknown]
